FAERS Safety Report 20608775 (Version 2)
Quarter: 2022Q1

REPORT INFORMATION
  Report Type: Spontaneous
  Country: US (occurrence: None)
  Receive Date: 20220317
  Receipt Date: 20220323
  Transmission Date: 20220423
  Serious: Yes (Other)
  Sender: FDA-Public Use
  Company Number: 2022A109744

PATIENT
  Age: 25203 Day
  Sex: Male
  Weight: 110.2 kg

DRUGS (2)
  1. EVUSHELD [Suspect]
     Active Substance: CILGAVIMAB\TIXAGEVIMAB
     Indication: Immunisation
     Dosage: DOSE 2 ONCE/SINGLE ADMINISTRATION
     Route: 041
     Dates: start: 20220305, end: 20220305
  2. EVUSHELD [Suspect]
     Active Substance: CILGAVIMAB\TIXAGEVIMAB
     Indication: Immunisation
     Dosage: DOSE 1 ONCE/SINGLE ADMINISTRATION
     Route: 041
     Dates: start: 20220122, end: 20220122

REACTIONS (2)
  - Atrial fibrillation [Recovering/Resolving]
  - Chest pain [Recovered/Resolved]

NARRATIVE: CASE EVENT DATE: 20220309
